FAERS Safety Report 19587837 (Version 1)
Quarter: 2021Q3

REPORT INFORMATION
  Report Type: Spontaneous
  Country: US (occurrence: EG)
  Receive Date: 20210721
  Receipt Date: 20210721
  Transmission Date: 20211014
  Serious: Yes (Other)
  Sender: FDA-Public Use
  Company Number: EG-HIKMA PHARMACEUTICALS USA INC.-EG-H14001-21-03275

PATIENT
  Age: 4 Decade
  Sex: Female

DRUGS (2)
  1. GEMZAR [Suspect]
     Active Substance: GEMCITABINE HYDROCHLORIDE
     Indication: UTERINE CANCER
     Dosage: ON DAY 1 AND 8 FROM EVERY 21 DAYS CYCLE
     Route: 041
     Dates: start: 2021
  2. CARBOTINOL [Suspect]
     Active Substance: CARBOPLATIN
     Indication: UTERINE CANCER
     Dosage: DAY 1 FROM EVERY 21 DAYS
     Route: 041
     Dates: start: 2021

REACTIONS (7)
  - Aphasia [Unknown]
  - Erythema [Unknown]
  - Oedema peripheral [Unknown]
  - Lymphocytosis [Unknown]
  - Normochromic normocytic anaemia [Unknown]
  - Face oedema [Unknown]
  - Cough [Unknown]

NARRATIVE: CASE EVENT DATE: 20210320
